FAERS Safety Report 12580943 (Version 1)
Quarter: 2016Q3

REPORT INFORMATION
  Report Type: Spontaneous
  Country: DE (occurrence: DE)
  Receive Date: 20160721
  Receipt Date: 20160721
  Transmission Date: 20161109
  Serious: Yes (Other)
  Sender: FDA-Public Use
  Company Number: GXKR2016DE003435

PATIENT

DRUGS (6)
  1. SALBUTAMOL [Concomitant]
     Active Substance: ALBUTEROL
     Indication: ASTHMA
     Dosage: 0.1 [MG/D BEI BEDARF ]/ IF REQUIRED
     Route: 064
     Dates: start: 20150709, end: 20160407
  2. SERTRALINE [Suspect]
     Active Substance: SERTRALINE HYDROCHLORIDE
     Indication: DEPRESSION
     Dosage: 50 [MG/D ]
     Route: 064
     Dates: start: 20150709, end: 20160407
  3. PROTOPIC [Concomitant]
     Active Substance: TACROLIMUS
     Indication: NEURODERMATITIS
     Dosage: IF REQUIRED
     Route: 064
     Dates: start: 20150709, end: 20160407
  4. FOLSAEURE [Concomitant]
     Active Substance: FOLIC ACID
     Indication: PROPHYLAXIS OF NEURAL TUBE DEFECT
     Route: 064
     Dates: start: 20150822, end: 20160407
  5. SYMBICORT [Suspect]
     Active Substance: BUDESONIDE\FORMOTEROL FUMARATE DIHYDRATE
     Indication: ASTHMA
     Dosage: UNK UKN, UNK
     Route: 064
     Dates: start: 20150709, end: 20160407
  6. CETIRIZINE [Concomitant]
     Active Substance: CETIRIZINE HYDROCHLORIDE
     Indication: FOOD ALLERGY
     Dosage: 10 [MG/D ]/ IF REQUIRED
     Route: 064
     Dates: start: 20150709, end: 20160407

REACTIONS (1)
  - Small for dates baby [Unknown]

NARRATIVE: CASE EVENT DATE: 20160407
